FAERS Safety Report 5200364-5 (Version None)
Quarter: 2007Q1

REPORT INFORMATION
  Report Type: 
  Country: None (occurrence: None)
  Receive Date: 20070105
  Receipt Date: 20061225
  Transmission Date: 20070707
  Serious: Yes (Other)
  Sender: FDA-Public Use
  Company Number: JP-PFIZER INC-2006155641

PATIENT

DRUGS (2)
  1. HALCION [Suspect]
     Dosage: TEXT:UNKNOWN
     Route: 048
  2. ITRIZOLE [Interacting]
     Dosage: TEXT:UNKNOWN

REACTIONS (2)
  - DRUG INTERACTION [None]
  - MEMORY IMPAIRMENT [None]
